FAERS Safety Report 4314233-6 (Version None)
Quarter: 2004Q1

REPORT INFORMATION
  Report Type: 
  Country: None (occurrence: None)
  Receive Date: 20040309
  Receipt Date: 20040309
  Transmission Date: 20041129
  Serious: Yes (Death)
  Sender: FDA-Public Use
  Company Number: None

PATIENT
  Age: 87 Year
  Sex: Female
  Weight: 42.5 kg

DRUGS (1)
  1. ALTEPLASE 1MG/ML GENENTECH [Suspect]
     Indication: ISCHAEMIC STROKE
     Dosage: 38 1 HR INTRAVENOUS
     Route: 042
     Dates: start: 20031212, end: 20031212

REACTIONS (1)
  - UNEVALUABLE EVENT [None]
